FAERS Safety Report 8695909 (Version 2)
Quarter: 2013Q4

REPORT INFORMATION
  Report Type: Spontaneous
  Country: US (occurrence: US)
  Receive Date: 20120801
  Receipt Date: 20131106
  Transmission Date: 20140711
  Serious: Yes (Hospitalization)
  Sender: FDA-Public Use
  Company Number: US-MSD-1207USA010590

PATIENT
  Age: 58 Year
  Sex: Male

DRUGS (3)
  1. ZOCOR [Suspect]
     Route: 048
  2. TOPROL XL TABLETS [Suspect]
     Route: 048
  3. TRICOR (ADENOSINE) [Suspect]

REACTIONS (3)
  - Osteoarthritis [Unknown]
  - Hepatic enzyme increased [Unknown]
  - Blood triglycerides increased [Unknown]
